FAERS Safety Report 9749204 (Version 1)
Quarter: 2013Q4

REPORT INFORMATION
  Report Type: Spontaneous
  Country: US (occurrence: US)
  Receive Date: 20131212
  Receipt Date: 20131212
  Transmission Date: 20140711
  Serious: No
  Sender: FDA-Public Use
  Company Number: US-INCYTE CORPORATION-2013IN002488

PATIENT
  Sex: Male

DRUGS (5)
  1. JAKAFI [Suspect]
     Indication: BLOOD DISORDER
     Dosage: 20 MG, BID
     Dates: start: 201112
  2. SYNTHROID [Concomitant]
  3. BYSTOLIC [Concomitant]
  4. ALLOPURINOL [Concomitant]
  5. BUPROPION HCL SR [Concomitant]

REACTIONS (3)
  - Pain in extremity [None]
  - Muscle spasms [None]
  - Muscle spasticity [Unknown]
